FAERS Safety Report 17432132 (Version 4)
Quarter: 2020Q2

REPORT INFORMATION
  Report Type: Report from Study
  Country: US (occurrence: US)
  Receive Date: 20200218
  Receipt Date: 20200423
  Transmission Date: 20200713
  Serious: No
  Sender: FDA-Public Use
  Company Number: US-ALLERGAN-2007017US

PATIENT
  Age: 67 Year
  Sex: Female

DRUGS (4)
  1. PRISTIQ EXTENDED-RELEASE [Concomitant]
     Active Substance: DESVENLAFAXINE SUCCINATE
     Indication: PRODUCT USED FOR UNKNOWN INDICATION
  2. CARIPRAZINE HCL 1.5MG CAP (011327X) [Suspect]
     Active Substance: CARIPRAZINE HYDROCHLORIDE
     Indication: BIPOLAR DISORDER
     Dosage: 1.5 MG, BID
     Route: 048
  3. CARIPRAZINE HCL 1.5MG CAP (011327X) [Suspect]
     Active Substance: CARIPRAZINE HYDROCHLORIDE
     Indication: DEPRESSION
     Dosage: 1.5 MG, QD
     Route: 048
  4. CARIPRAZINE HCL 1.5MG CAP (011327X) [Suspect]
     Active Substance: CARIPRAZINE HYDROCHLORIDE
     Dosage: 1.5 MG, QD
     Route: 048

REACTIONS (5)
  - Sleep disorder [Recovered/Resolved]
  - Fall [Unknown]
  - Abnormal dreams [Recovered/Resolved]
  - Visual impairment [Recovering/Resolving]
  - Vision blurred [Recovered/Resolved]

NARRATIVE: CASE EVENT DATE: 20200325
